FAERS Safety Report 7262334-5 (Version None)
Quarter: 2011Q1

REPORT INFORMATION
  Report Type: 
  Country: None (occurrence: None)
  Receive Date: 20110119
  Receipt Date: 20101216
  Transmission Date: 20110831
  Serious: Yes (Other)
  Sender: FDA-Public Use
  Company Number: JPI-P-009499

PATIENT
  Age: 41 Year
  Sex: Female
  Weight: 76.6579 kg

DRUGS (16)
  1. ESOMEPRAZOLE [Concomitant]
  2. XYREM [Suspect]
     Indication: NARCOLEPSY
     Dosage: SEE IMAGE
     Route: 048
     Dates: end: 20091027
  3. XYREM [Suspect]
     Indication: NARCOLEPSY
     Dosage: SEE IMAGE
     Route: 048
     Dates: start: 20060714
  4. XYREM [Suspect]
     Indication: NARCOLEPSY
     Dosage: SEE IMAGE
     Route: 048
     Dates: start: 20100106, end: 20100110
  5. XYREM [Suspect]
     Indication: NARCOLEPSY
     Dosage: SEE IMAGE
     Route: 048
     Dates: end: 20091027
  6. XYREM [Suspect]
     Indication: NARCOLEPSY
     Dosage: SEE IMAGE
     Route: 048
     Dates: start: 20100101
  7. XYREM [Suspect]
     Indication: NARCOLEPSY
     Dosage: SEE IMAGE
     Route: 048
     Dates: start: 20100111, end: 20100101
  8. XYREM [Suspect]
     Indication: NARCOLEPSY
     Dosage: SEE IMAGE
     Route: 048
     Dates: start: 20091101, end: 20091215
  9. XYREM [Suspect]
     Indication: NARCOLEPSY
     Dosage: SEE IMAGE
     Route: 048
     Dates: start: 20100106, end: 20100110
  10. XYREM [Suspect]
     Indication: NARCOLEPSY
     Dosage: SEE IMAGE
     Route: 048
     Dates: start: 20100111, end: 20100101
  11. CLOMIPRAMINE [Suspect]
     Indication: DEPRESSION
     Dates: end: 20090901
  12. OMEPRAZOLE [Concomitant]
  13. CITALOPRAM [Concomitant]
  14. ESCITALOPRAM OXALATE [Concomitant]
  15. IRON [Concomitant]
  16. LANSOPRAZOLE [Concomitant]

REACTIONS (7)
  - HUNGER [None]
  - PROCEDURAL PAIN [None]
  - BREAST CANCER FEMALE [None]
  - INFLUENZA LIKE ILLNESS [None]
  - VOMITING [None]
  - WEIGHT INCREASED [None]
  - INITIAL INSOMNIA [None]
